FAERS Safety Report 4690010-1 (Version None)
Quarter: 2005Q2

REPORT INFORMATION
  Report Type: 
  Country: None (occurrence: None)
  Receive Date: 20050513
  Receipt Date: 20041111
  Transmission Date: 20051028
  Serious: Yes (Other)
  Sender: FDA-Public Use
  Company Number: 2004-122343-NL

PATIENT
  Age: 63 Year
  Sex: Female
  Weight: 61 kg

DRUGS (6)
  1. ROCURONIUM [Suspect]
     Indication: MUSCLE RELAXANT THERAPY
     Dosage: 110 MG INTRAVENOUS (NOS)
     Route: 042
     Dates: start: 20041108, end: 20041108
  2. ROCURONIUM [Suspect]
  3. ROCURONIUM [Suspect]
  4. ROCURONIUM [Suspect]
  5. SEVOFLURANE [Concomitant]
  6. FENTANYL [Concomitant]

REACTIONS (1)
  - NEUROMUSCULAR BLOCK PROLONGED [None]
